FAERS Safety Report 21655080 (Version 4)
Quarter: 2023Q1

REPORT INFORMATION
  Report Type: Report from Study
  Country: AU (occurrence: AU)
  Receive Date: 20221129
  Receipt Date: 20230111
  Transmission Date: 20230417
  Serious: Yes (Hospitalization)
  Sender: FDA-Public Use
  Company Number: AU-ABBVIE-4216182

PATIENT
  Age: 67 Year
  Sex: Female

DRUGS (3)
  1. CARBIDOPA\LEVODOPA [Suspect]
     Active Substance: CARBIDOPA\LEVODOPA
     Indication: Parkinson^s disease
     Dosage: DURATION TEXT: 24 HOURS?DOSE INCREASED?CONTINUOUS RATE WAS INCREASED
     Route: 050
     Dates: start: 202211
  2. CARBIDOPA\LEVODOPA [Suspect]
     Active Substance: CARBIDOPA\LEVODOPA
     Dosage: DURATION TEXT: 24 HOURS?END DATE - NOV 2022
     Route: 050
     Dates: start: 20221107
  3. BOTOX [Suspect]
     Active Substance: ONABOTULINUMTOXINA
     Indication: Product used for unknown indication
     Route: 065
     Dates: start: 2022

REACTIONS (9)
  - Injury [Not Recovered/Not Resolved]
  - Injection related reaction [Unknown]
  - Mobility decreased [Not Recovered/Not Resolved]
  - Hypotension [Unknown]
  - On and off phenomenon [Unknown]
  - Nausea [Unknown]
  - Fall [Not Recovered/Not Resolved]
  - Hallucination [Unknown]
  - Dystonia [Unknown]

NARRATIVE: CASE EVENT DATE: 20221101
